FAERS Safety Report 17160620 (Version 1)
Quarter: 2020Q3

REPORT INFORMATION
  Report Type: Report from Study
  Country: DE (occurrence: DE)
  Receive Date: 20191216
  Receipt Date: 20191216
  Transmission Date: 20201105
  Serious: Yes (Hospitalization)
  Sender: FDA-Public Use
  Company Number: DE-RIGEL PHARMACEUTICALS, INC.-2018FOS000001

PATIENT

DRUGS (8)
  1. FOSTAMATINIB DISODIUM 100 MG [Suspect]
     Active Substance: FOSTAMATINIB DISODIUM
     Indication: IGA NEPHROPATHY
     Dosage: 100 MG, BID
     Route: 048
     Dates: start: 20160114, end: 20180317
  2. CPS [Concomitant]
     Indication: HYPERKALAEMIA
     Dosage: 15 G, PRN
     Route: 048
     Dates: start: 20170808
  3. CLONIDIN [Concomitant]
     Active Substance: CLONIDINE
     Indication: HYPERTENSION
     Dosage: 0.25 MG, QD
     Route: 048
     Dates: start: 201508
  4. CANDESARTAN. [Concomitant]
     Active Substance: CANDESARTAN
     Indication: HYPERTENSION
     Dosage: 8 MG, BID
     Route: 048
     Dates: start: 20151022
  5. FOSTAMATINIB DISODIUM 100 MG [Suspect]
     Active Substance: FOSTAMATINIB DISODIUM
     Dosage: 100 MG, BID
     Route: 048
     Dates: start: 20180321
  6. AMLODIPIN                          /00972401/ [Concomitant]
     Active Substance: AMLODIPINE BESYLATE
     Indication: HYPERTENSION
     Dosage: 5 MG, BID
     Route: 048
     Dates: start: 201508
  7. HYDROCHLOROTHIAZIDE. [Concomitant]
     Active Substance: HYDROCHLOROTHIAZIDE
     Indication: HYPERTENSION
     Dosage: 12.5 MG, QD
     Route: 048
     Dates: start: 20151102
  8. FUROSEMID                          /00032601/ [Concomitant]
     Active Substance: FUROSEMIDE
     Indication: DIURETIC THERAPY
     Dosage: 20 MG, QD
     Route: 048
     Dates: start: 20170808

REACTIONS (2)
  - Cellulitis [Recovered/Resolved]
  - Gout [Recovered/Resolved]

NARRATIVE: CASE EVENT DATE: 20180316
